FAERS Safety Report 4429756-9 (Version None)
Quarter: 2004Q3

REPORT INFORMATION
  Report Type: 
  Country: None (occurrence: None)
  Receive Date: 20040817
  Receipt Date: 20040804
  Transmission Date: 20050211
  Serious: Yes (Disabling)
  Sender: FDA-Public Use
  Company Number: 2004-0007327

PATIENT
  Sex: Male

DRUGS (3)
  1. VIREAD [Suspect]
     Indication: HIV INFECTION
     Dosage: 300 MG, 1 IN 1 D, ORAL
     Route: 048
     Dates: start: 20010101, end: 20040501
  2. EPIVIR [Concomitant]
  3. ZERIT [Concomitant]

REACTIONS (3)
  - IMPAIRED WORK ABILITY [None]
  - LIPOHYPERTROPHY [None]
  - MOBILITY DECREASED [None]
